FAERS Safety Report 15007122 (Version 1)
Quarter: 2018Q2

REPORT INFORMATION
  Report Type: Spontaneous
  Country: TH (occurrence: TH)
  Receive Date: 20180613
  Receipt Date: 20180613
  Transmission Date: 20180711
  Serious: Yes (Other)
  Sender: FDA-Public Use
  Company Number: TH-EPIC PHARMA LLC-2018EPC00282

PATIENT
  Age: 43 Year
  Sex: Male

DRUGS (1)
  1. AMPHETAMINE [Suspect]
     Active Substance: AMPHETAMINE
     Dosage: UNK
     Route: 065

REACTIONS (3)
  - Central nervous system necrosis [Recovering/Resolving]
  - Toxicity to various agents [Recovering/Resolving]
  - Dystonia [Recovering/Resolving]
